FAERS Safety Report 20921421 (Version 1)
Quarter: 2022Q2

REPORT INFORMATION
  Report Type: Report from Study
  Country: JP (occurrence: JP)
  Receive Date: 20220606
  Receipt Date: 20220606
  Transmission Date: 20220721
  Serious: Yes (Hospitalization)
  Sender: FDA-Public Use
  Company Number: JP-ABBVIE-19P-087-2613189-00

PATIENT
  Age: 69 Year
  Sex: Female
  Weight: 39.2 kg

DRUGS (35)
  1. METHOTREXATE [Suspect]
     Active Substance: METHOTREXATE
     Indication: Rheumatoid arthritis
     Route: 048
     Dates: start: 20170110, end: 20170411
  2. UPADACITINIB [Suspect]
     Active Substance: UPADACITINIB
     Indication: Rheumatoid arthritis
     Route: 048
     Dates: start: 20170418, end: 20181217
  3. PREDNISOLONE [Concomitant]
     Active Substance: PREDNISOLONE
     Indication: Rheumatoid arthritis
     Route: 048
     Dates: start: 2011, end: 20111226
  4. PREDNISOLONE [Concomitant]
     Active Substance: PREDNISOLONE
     Route: 048
     Dates: start: 20111227, end: 20120709
  5. PREDNISOLONE [Concomitant]
     Active Substance: PREDNISOLONE
     Route: 048
     Dates: start: 20120710, end: 20160229
  6. PREDNISOLONE [Concomitant]
     Active Substance: PREDNISOLONE
     Route: 048
     Dates: start: 20161011, end: 20170711
  7. PREDNISOLONE [Concomitant]
     Active Substance: PREDNISOLONE
     Dosage: 2 MG IN AM, 1 MG IN PM
     Route: 048
     Dates: start: 20170808, end: 20181112
  8. PREDNISOLONE [Concomitant]
     Active Substance: PREDNISOLONE
     Route: 048
     Dates: start: 20181113
  9. CELECOXIB [Concomitant]
     Active Substance: CELECOXIB
     Indication: Rheumatoid arthritis
     Route: 048
     Dates: start: 2011, end: 20160229
  10. CELECOXIB [Concomitant]
     Active Substance: CELECOXIB
     Route: 048
     Dates: start: 20160705, end: 20170711
  11. CELECOXIB [Concomitant]
     Active Substance: CELECOXIB
     Route: 048
     Dates: start: 20170808, end: 20190104
  12. RISEDRONATE SODIUM [Concomitant]
     Active Substance: RISEDRONATE SODIUM
     Indication: Osteoporosis
     Route: 048
     Dates: start: 20160904, end: 20170108
  13. RISEDRONATE SODIUM [Concomitant]
     Active Substance: RISEDRONATE SODIUM
     Route: 048
     Dates: start: 20180429
  14. LAC-B GRANULAR POWDER N [Concomitant]
     Indication: Diarrhoea
     Route: 048
     Dates: start: 20170117, end: 20170123
  15. LAC-B GRANULAR POWDER N [Concomitant]
     Indication: Prophylaxis against diarrhoea
     Route: 048
     Dates: start: 20170124
  16. LULICONAZOLE [Concomitant]
     Active Substance: LULICONAZOLE
     Indication: Tinea infection
     Route: 061
     Dates: start: 20161213, end: 20170430
  17. LULICONAZOLE [Concomitant]
     Active Substance: LULICONAZOLE
     Route: 061
     Dates: start: 20180529
  18. ZEFNART SOLUTION [Concomitant]
     Indication: Tinea infection
     Route: 061
     Dates: start: 20161213, end: 20170430
  19. ZEFNART SOLUTION [Concomitant]
     Route: 061
     Dates: start: 20180529
  20. HEPARINOID OIL-BASED CREAM [Concomitant]
     Indication: Asteatosis
     Route: 061
     Dates: start: 20170110, end: 20170430
  21. HEPARINOID OIL-BASED CREAM [Concomitant]
     Route: 061
     Dates: start: 20180529
  22. AZILSARTAN KAMEDOXOMIL [Concomitant]
     Active Substance: AZILSARTAN KAMEDOXOMIL
     Indication: Hypertension
     Route: 048
     Dates: start: 20170208, end: 20180411
  23. AZILSARTAN KAMEDOXOMIL [Concomitant]
     Active Substance: AZILSARTAN KAMEDOXOMIL
     Route: 048
     Dates: start: 20180424
  24. VONOPRAZAN FUMARATE [Concomitant]
     Active Substance: VONOPRAZAN FUMARATE
     Indication: Gastrooesophageal reflux disease
     Route: 048
     Dates: start: 20170314
  25. KETOPROFEN TAPE [Concomitant]
     Indication: Rheumatoid arthritis
     Route: 061
     Dates: start: 20170419, end: 20190104
  26. CALONAL [Concomitant]
     Active Substance: ACETAMINOPHEN
     Indication: Headache
     Route: 048
     Dates: start: 20170523, end: 20170523
  27. CALONAL [Concomitant]
     Active Substance: ACETAMINOPHEN
     Indication: Rib fracture
     Route: 048
     Dates: start: 20170808
  28. CALONAL [Concomitant]
     Active Substance: ACETAMINOPHEN
     Route: 048
     Dates: start: 20181218
  29. MOSAPRIDE CITRATE [Concomitant]
     Active Substance: MOSAPRIDE CITRATE
     Indication: Gastrooesophageal reflux disease
     Route: 048
     Dates: start: 20170919
  30. FELBINAC [Concomitant]
     Active Substance: FELBINAC
     Indication: Rheumatoid arthritis
     Route: 062
     Dates: start: 20171107
  31. ECABET NA [Concomitant]
     Indication: Gastrooesophageal reflux disease
     Route: 048
     Dates: start: 20180327
  32. METHYL SALICYLATE [Concomitant]
     Active Substance: METHYL SALICYLATE
     Indication: Rheumatoid arthritis
     Route: 061
     Dates: start: 20180417
  33. DEXTROMETHORPHAN HYDROBROMIDE [Concomitant]
     Active Substance: DEXTROMETHORPHAN HYDROBROMIDE
     Indication: Nasopharyngitis
     Route: 048
     Dates: start: 20181218
  34. DEXTROMETHORPHAN HYDROBROMIDE [Concomitant]
     Active Substance: DEXTROMETHORPHAN HYDROBROMIDE
     Route: 048
     Dates: start: 20181221, end: 20181224
  35. TRANSAMIN [Concomitant]
     Active Substance: TRANEXAMIC ACID
     Indication: Nasopharyngitis
     Route: 048
     Dates: start: 20181218

REACTIONS (1)
  - Bronchitis [Not Recovered/Not Resolved]

NARRATIVE: CASE EVENT DATE: 20190104
